FAERS Safety Report 8539975-8 (Version None)
Quarter: 2012Q3

REPORT INFORMATION
  Report Type: 
  Country: None (occurrence: None)
  Receive Date: 20120726
  Receipt Date: 20120720
  Transmission Date: 20120928
  Serious: Yes (Disabling, Other)
  Sender: FDA-Public Use
  Company Number: PHHY2012GB062639

PATIENT
  Age: 55 Year
  Sex: Male

DRUGS (7)
  1. DOXAZOSIN MESYLATE [Suspect]
     Indication: HYPERTENSION
     Dosage: 1 MG
     Route: 048
     Dates: start: 20110601, end: 20110701
  2. GLICLAZIDE [Concomitant]
     Dosage: 80 MG, UNK
     Route: 048
     Dates: start: 20070101
  3. BENDROFLUMETHIAZIDE [Concomitant]
     Indication: HYPERTENSION
     Dosage: 2.5 MG, UNK
     Dates: start: 20010101
  4. DOXAZOSIN MESYLATE [Suspect]
     Dosage: 2 MG
     Route: 048
     Dates: start: 20110701, end: 20110801
  5. METFORMIN HYDROCHLORIDE [Concomitant]
     Dosage: 500 MG, UNK
     Route: 048
     Dates: start: 20070101
  6. DOXAZOSIN MESYLATE [Suspect]
     Dosage: 4 MG
     Route: 048
     Dates: start: 20110801, end: 20110822
  7. SIMVASTATIN [Concomitant]
     Indication: BLOOD CHOLESTEROL
     Dosage: 40 MG, UNK
     Route: 048
     Dates: start: 20070101

REACTIONS (5)
  - ARTHRITIS INFECTIVE [None]
  - HAEMOGLOBIN DECREASED [None]
  - RHEUMATOID ARTHRITIS [None]
  - WEIGHT DECREASED [None]
  - JOINT SWELLING [None]
